FAERS Safety Report 4699503-4 (Version None)
Quarter: 2005Q2

REPORT INFORMATION
  Report Type: 
  Country: None (occurrence: None)
  Receive Date: 20050622
  Receipt Date: 20050608
  Transmission Date: 20051028
  Serious: Yes (Hospitalization)
  Sender: FDA-Public Use
  Company Number: 215146

PATIENT
  Age: 61 Year
  Sex: Male

DRUGS (5)
  1. MABTHERA(RITUXIMAB) CON FOR SOLUTION FOR INFUSION [Suspect]
     Indication: DIFFUSE LARGE B-CELL LYMPHOMA
     Dosage: 675 MG, SINGLE,INTRAVENOUS
     Route: 042
     Dates: start: 20040607, end: 20040607
  2. CYCLOPHOSPHAMIDE [Suspect]
     Indication: DIFFUSE LARGE B-CELL LYMPHOMA
     Dosage: 1350 MG, INTRAVENOUS
     Route: 042
     Dates: start: 20040607, end: 20040611
  3. DOXORUBICIN HYDROCHLORIDE [Suspect]
     Indication: DIFFUSE LARGE B-CELL LYMPHOMA
     Dosage: 90 MG, INTRAVENOUS
     Route: 042
     Dates: start: 20040607, end: 20040611
  4. ONCOVIN [Suspect]
     Indication: DIFFUSE LARGE B-CELL LYMPHOMA
     Dosage: 2 MG, INTRAVENOUS
     Route: 042
     Dates: start: 20040607, end: 20040611
  5. PREDNISOLONE [Suspect]
     Indication: DIFFUSE LARGE B-CELL LYMPHOMA
     Dosage: 100 MG, ORAL
     Route: 048
     Dates: start: 20040607, end: 20040611

REACTIONS (1)
  - HERPETIC STOMATITIS [None]
